FAERS Safety Report 9039593 (Version 1)
Quarter: 2013Q1

REPORT INFORMATION
  Report Type: Report from Study
  Country: US (occurrence: US)
  Receive Date: 20130129
  Receipt Date: 20130129
  Transmission Date: 20140127
  Serious: No
  Sender: FDA-Public Use
  Company Number: US-ABBOTT-12P-163-0942910-00

PATIENT
  Age: 57 Year
  Sex: Female

DRUGS (13)
  1. HUMIRA 40 MG/0.8 ML PEN [Suspect]
     Indication: ANKYLOSING SPONDYLITIS
     Dates: start: 200608
  2. HUMIRA 40 MG/0.8 ML PEN [Suspect]
     Dates: start: 201205
  3. METHOTREXATE [Concomitant]
     Indication: PRODUCT USED FOR UNKNOWN INDICATION
     Dosage: 10 TABS WEEKLY
  4. FOLIC ACID [Concomitant]
     Indication: PRODUCT USED FOR UNKNOWN INDICATION
  5. PLAQUENIL [Concomitant]
     Indication: PRODUCT USED FOR UNKNOWN INDICATION
  6. PREVACID [Concomitant]
     Indication: GASTROOESOPHAGEAL REFLUX DISEASE
     Dosage: 30MG DAILY
  7. ZYRTEC [Concomitant]
     Indication: HYPERSENSITIVITY
     Dosage: 10MG DAILY
  8. KLONOPIN [Concomitant]
     Indication: ANXIETY
     Dosage: 1/2MG IN AM AND 1/2MG PM
  9. BUPROPION [Concomitant]
     Indication: DEPRESSION
  10. LITHIUM [Concomitant]
     Indication: BIPOLAR DISORDER
     Dosage: 300MG DAILY
  11. HYDROCODONE [Concomitant]
     Indication: PRODUCT USED FOR UNKNOWN INDICATION
     Dosage: 1 EVERY FEW DAYS
  12. UNKNOWN ALLERGY SHOTS [Concomitant]
     Indication: PRODUCT USED FOR UNKNOWN INDICATION
     Dosage: EVERY 4 WEEKS
  13. DERMAMIST [Concomitant]
     Indication: RASH
     Dates: start: 201108

REACTIONS (3)
  - Injection site pain [Unknown]
  - Injection site pain [Unknown]
  - Musculoskeletal stiffness [Unknown]
